FAERS Safety Report 7369474-0 (Version None)
Quarter: 2011Q1

REPORT INFORMATION
  Report Type: 
  Country: None (occurrence: None)
  Receive Date: 20110323
  Receipt Date: 20110308
  Transmission Date: 20110831
  Serious: No
  Sender: FDA-Public Use
  Company Number: PHHY2011US02063

PATIENT
  Sex: Female

DRUGS (6)
  1. ESTER-C [Concomitant]
  2. ANTACID TAB [Concomitant]
  3. RESVERATORL [Concomitant]
  4. EXFORGE HCT [Suspect]
     Dosage: 1 DF, QD
     Route: 048
  5. MULTIVITAMIN [Concomitant]
  6. LEVOTHYROXINE SODIUM [Concomitant]

REACTIONS (9)
  - ACTIVITIES OF DAILY LIVING IMPAIRED [None]
  - SLEEP DISORDER [None]
  - FATIGUE [None]
  - BLOOD PRESSURE DECREASED [None]
  - ABDOMINAL PAIN UPPER [None]
  - ASTHENIA [None]
  - MUSCULAR WEAKNESS [None]
  - ERUCTATION [None]
  - ARTHRALGIA [None]
